FAERS Safety Report 6862369-8 (Version None)
Quarter: 2010Q3

REPORT INFORMATION
  Report Type: 
  Country: None (occurrence: None)
  Receive Date: 20100721
  Receipt Date: 20100712
  Transmission Date: 20110219
  Serious: No
  Sender: FDA-Public Use
  Company Number: US-JNJFOC-20100704032

PATIENT
  Sex: Female

DRUGS (9)
  1. SANDOZ FENTANYL TRANSDERMAL SYSTEM [Suspect]
     Indication: PAIN
     Route: 062
  2. SANDOZ FENTANYL TRANSDERMAL SYSTEM [Suspect]
     Route: 062
  3. SANDOZ FENTANYL TRANSDERMAL SYSTEM [Suspect]
     Route: 062
  4. LORTAB [Concomitant]
     Indication: PAIN
     Route: 048
  5. SEROQUEL [Concomitant]
     Indication: SLEEP DISORDER
     Route: 048
  6. TRAZODONE HYDROCHLORIDE [Concomitant]
     Indication: SLEEP DISORDER
     Route: 048
  7. ZOLOFT [Concomitant]
     Indication: DEPRESSION
     Route: 048
  8. LISINOPRIL [Concomitant]
     Indication: BLOOD PRESSURE
     Route: 048
  9. METOPROLOL [Concomitant]
     Indication: BLOOD PRESSURE
     Route: 048

REACTIONS (3)
  - DRUG ADMINISTERED AT INAPPROPRIATE SITE [None]
  - DRUG EFFECT DECREASED [None]
  - WRONG TECHNIQUE IN DRUG USAGE PROCESS [None]
